FAERS Safety Report 9620952 (Version 1)
Quarter: 2013Q4

REPORT INFORMATION
  Report Type: Spontaneous
  Country: AU (occurrence: AU)
  Receive Date: 20131015
  Receipt Date: 20131015
  Transmission Date: 20140711
  Serious: Yes (Other)
  Sender: FDA-Public Use
  Company Number: PHHY2013AU115065

PATIENT
  Sex: Male

DRUGS (1)
  1. RITALIN [Suspect]
     Dosage: UNK UKN, UNK

REACTIONS (5)
  - Confusional state [Unknown]
  - Epistaxis [Unknown]
  - Paranoia [Unknown]
  - Visual impairment [Unknown]
  - Anxiety [Unknown]
